FAERS Safety Report 10630397 (Version 1)
Quarter: 2014Q4

REPORT INFORMATION
  Report Type: Spontaneous
  Country: US (occurrence: US)
  Receive Date: 20141205
  Receipt Date: 20141205
  Transmission Date: 20150529
  Serious: No
  Sender: FDA-Public Use
  Company Number: US-BRISTOL-MYERS SQUIBB COMPANY-20700597

PATIENT
  Age: 67 Year
  Weight: 86 kg

DRUGS (8)
  1. METFORMIN HCL [Suspect]
     Active Substance: METFORMIN HYDROCHLORIDE
  2. LISINOPRIL. [Suspect]
     Active Substance: LISINOPRIL
  3. NOVOLOG [Concomitant]
     Active Substance: INSULIN ASPART
  4. METOPROLOL [Concomitant]
     Active Substance: METOPROLOL
  5. LEXAPRO [Concomitant]
     Active Substance: ESCITALOPRAM OXALATE
  6. SUTENT [Concomitant]
     Active Substance: SUNITINIB MALATE
     Dates: start: 20140327
  7. REGLAN [Suspect]
     Active Substance: METOCLOPRAMIDE HYDROCHLORIDE
  8. LANTUS [Concomitant]
     Active Substance: INSULIN GLARGINE

REACTIONS (1)
  - Drug hypersensitivity [Unknown]
